FAERS Safety Report 7088051-2 (Version None)
Quarter: 2010Q4

REPORT INFORMATION
  Report Type: 
  Country: None (occurrence: None)
  Receive Date: 20101108
  Receipt Date: 20101026
  Transmission Date: 20110411
  Serious: Yes (Hospitalization)
  Sender: FDA-Public Use
  Company Number: PHHY2010AR71790

PATIENT
  Sex: Male

DRUGS (6)
  1. CLOZAPINE [Suspect]
     Indication: MENTAL DISORDER
     Dosage: UNK
     Dates: start: 20070320
  2. CLOZAPINE [Suspect]
     Dosage: 400 MG/DAY
  3. ETUMINA [Concomitant]
     Dosage: 60 MG/DAY
  4. CLONAZEPAM [Concomitant]
     Dosage: 8 MG/DAY
  5. DIAZEPAM [Concomitant]
     Dosage: 10 MG/DAY
  6. VALPROATE SODIUM [Concomitant]
     Dosage: 1600 MG/DAY

REACTIONS (2)
  - PSYCHIATRIC DECOMPENSATION [None]
  - PSYCHOMOTOR HYPERACTIVITY [None]
